FAERS Safety Report 5821094-2 (Version None)
Quarter: 2008Q3

REPORT INFORMATION
  Report Type: 
  Country: None (occurrence: None)
  Receive Date: 20080724
  Receipt Date: 20080717
  Transmission Date: 20090109
  Serious: Yes (Hospitalization)
  Sender: FDA-Public Use
  Company Number: JP-WATSON-2008-04355

PATIENT
  Age: 31 Year
  Sex: Male

DRUGS (3)
  1. PREDNISOLONE ACETATE [Suspect]
     Indication: IMMUNOSUPPRESSANT DRUG THERAPY
     Dosage: 6 MG, DAILY
     Dates: start: 20030401
  2. CYCLOSPORINE [Suspect]
     Indication: IMMUNOSUPPRESSANT DRUG THERAPY
     Dosage: 150 MG, DAILY
     Dates: start: 20030401
  3. MYCOPHENOLATE MOFETIL [Suspect]
     Indication: IMMUNOSUPPRESSANT DRUG THERAPY
     Dosage: 500 MG, DAILY
     Dates: start: 20030401

REACTIONS (3)
  - EPSTEIN-BARR VIRUS ASSOCIATED LYMPHOPROLIFERATIVE DISORDER [None]
  - EPSTEIN-BARR VIRUS INFECTION [None]
  - EXTRANODAL NK/T-CELL LYMPHOMA, NASAL TYPE [None]
